FAERS Safety Report 9885366 (Version 4)
Quarter: 2014Q1

REPORT INFORMATION
  Report Type: Spontaneous
  Country: US (occurrence: US)
  Receive Date: 20140210
  Receipt Date: 20140325
  Transmission Date: 20141002
  Serious: Yes (Hospitalization)
  Sender: FDA-Public Use
  Company Number: US-PFIZER INC-2013018413

PATIENT
  Age: 66 Year
  Sex: Female
  Weight: 90.7 kg

DRUGS (14)
  1. LYRICA [Suspect]
     Indication: BACK PAIN
     Dosage: 150 MG, 2X/DAY
     Dates: start: 2012
  2. METOPROLOL [Concomitant]
     Dosage: 75 MG, 1X/DAY
  3. LOSARTAN [Concomitant]
     Dosage: 100 MG, 1X/DAY
  4. AMLODIPINE [Concomitant]
     Dosage: 2.5 MG, 1X/DAY
  5. PANTOPRAZOLE [Concomitant]
     Dosage: 40 MG, 1X/DAY
  6. PRAVASTATIN [Concomitant]
     Dosage: 40 MG, 1X/DAY
  7. RANEXA [Concomitant]
     Dosage: 500 MG, 1X/DAY
  8. ASPIRIN [Concomitant]
     Dosage: 225 MG, 1X/DAY
  9. PLAVIX [Concomitant]
     Dosage: 75 MG, 1X/DAY
  10. FISH OIL [Concomitant]
     Dosage: 1000 MG, 1X/DAY
  11. CALCIUM [Concomitant]
     Dosage: UNK
  12. CILOSTAZOL [Concomitant]
     Dosage: 100 MG, 2X/DAY
  13. FIBER [Concomitant]
     Dosage: 625 MG, 2X/DAY
     Route: 048
  14. MULTIVITAMINS AND IRON [Concomitant]
     Dosage: UNK, DAILY

REACTIONS (1)
  - Malaise [Recovered/Resolved]
